FAERS Safety Report 6552734-0 (Version None)
Quarter: 2010Q1

REPORT INFORMATION
  Report Type: 
  Country: None (occurrence: None)
  Receive Date: 20100121
  Receipt Date: 20100111
  Transmission Date: 20100710
  Serious: Yes (Death)
  Sender: FDA-Public Use
  Company Number: 004567

PATIENT
  Age: 23 Year
  Sex: Female

DRUGS (11)
  1. ALPRAZOLAM [Suspect]
  2. GABAPENTIN [Suspect]
  3. PAROXETINE HCL [Suspect]
  4. FLUOXETINE [Suspect]
  5. NAPROXEN [Suspect]
  6. ZOLPIDEM [Suspect]
  7. PHENOBARBITAL TAB [Concomitant]
  8. ZOLPIDEM [Concomitant]
  9. LORAZEPAM [Concomitant]
  10. OPIOIDS [Suspect]
  11. ACETAMINOPHEN [Suspect]

REACTIONS (1)
  - COMPLETED SUICIDE [None]
